FAERS Safety Report 8307470-7 (Version None)
Quarter: 2012Q2

REPORT INFORMATION
  Report Type: 
  Country: None (occurrence: None)
  Receive Date: 20120424
  Receipt Date: 20120419
  Transmission Date: 20120825
  Serious: Yes (Other)
  Sender: FDA-Public Use
  Company Number: VE-PFIZER INC-2010142611

PATIENT
  Age: 53 Year
  Sex: Female

DRUGS (2)
  1. COZAAR [Concomitant]
     Indication: HYPERTENSION
     Dosage: 50 MG, 1X/DAY
     Route: 048
     Dates: start: 20100801
  2. NORVASC [Suspect]
     Indication: HYPERTENSION
     Dosage: 5 MG, 1X/DAY
     Route: 048
     Dates: start: 20090801

REACTIONS (3)
  - RENAL SURGERY [None]
  - RENAL DISORDER [None]
  - SWELLING [None]
